FAERS Safety Report 21439893 (Version 1)
Quarter: 2022Q4

REPORT INFORMATION
  Report Type: Spontaneous
  Country: US (occurrence: None)
  Receive Date: 20221008
  Receipt Date: 20221008
  Transmission Date: 20230112
  Serious: No
  Sender: FDA-Public Use
  Company Number: None

PATIENT
  Age: 32 Year
  Sex: Female
  Weight: 46.35 kg

DRUGS (3)
  1. FAMOTIDINE - ACID CONTROLLER [Suspect]
     Active Substance: FAMOTIDINE
     Indication: Dyspepsia
     Dosage: FREQUENCY : TWICE A DAY;?
     Route: 048
     Dates: start: 20220911, end: 20220914
  2. Prenatal vitamins dha prescribed [Concomitant]
  3. DIETARY SUPPLEMENT [Concomitant]
     Active Substance: DIETARY SUPPLEMENT

REACTIONS (4)
  - Blepharospasm [None]
  - Anxiety [None]
  - Feeling abnormal [None]
  - Product substitution issue [None]
